FAERS Safety Report 15666595 (Version 2)
Quarter: 2018Q4

REPORT INFORMATION
  Report Type: Report from Study
  Country: DE (occurrence: DE)
  Receive Date: 20181128
  Receipt Date: 20181207
  Transmission Date: 20190205
  Serious: Yes (Hospitalization, Other)
  Sender: FDA-Public Use
  Company Number: DE-SEATTLE GENETICS-2018SGN03044

PATIENT

DRUGS (11)
  1. BRENTUXIMAB VEDOTIN-MPI [Suspect]
     Active Substance: BRENTUXIMAB VEDOTIN
     Indication: HODGKIN^S DISEASE
     Dosage: 135 MG/KG, UNK
     Route: 065
     Dates: start: 20181112
  2. SULFAMETHOXAZOLE [Concomitant]
     Active Substance: SULFAMETHOXAZOLE
     Dosage: 480 MG, QD
     Route: 065
     Dates: start: 20181112
  3. CYCLOPHOSPHAMIDE. [Suspect]
     Active Substance: CYCLOPHOSPHAMIDE
     Indication: HODGKIN^S DISEASE
     Dosage: 2400 MG/M2, UNK
     Route: 065
     Dates: start: 20181113
  4. ETOPOSIDE. [Suspect]
     Active Substance: ETOPOSIDE
     Indication: HODGKIN^S DISEASE
     Dosage: 300 MG/M2, UNK
     Route: 065
     Dates: start: 20181113
  5. TRIMETHOPRIM. [Concomitant]
     Active Substance: TRIMETHOPRIM
  6. PEGFILGRASTIM [Concomitant]
     Active Substance: PEGFILGRASTIM
     Dosage: 6 MG, UNK
     Route: 065
     Dates: start: 20181116
  7. DEXAMETHASONE. [Suspect]
     Active Substance: DEXAMETHASONE
     Indication: HODGKIN^S DISEASE
     Dosage: 40 MG/M2, UNK
     Route: 065
  8. APREPITANT. [Concomitant]
     Active Substance: APREPITANT
     Dosage: 20 MG, QD
     Route: 065
     Dates: start: 20181113
  9. DOXORUBICIN [Suspect]
     Active Substance: DOXORUBICIN
     Indication: HODGKIN^S DISEASE
     Dosage: 80 MG/M2, UNK
     Route: 065
     Dates: start: 20181113
  10. DACARBAZINE. [Suspect]
     Active Substance: DACARBAZINE
     Indication: HODGKIN^S DISEASE
     Dosage: 480 MG/M2, UNK
     Route: 065
     Dates: start: 20181114
  11. OMEPRAZOLE. [Concomitant]
     Active Substance: OMEPRAZOLE
     Dosage: 90 MG, QD
     Route: 065
     Dates: start: 20181112

REACTIONS (2)
  - Sepsis [Not Recovered/Not Resolved]
  - Acute myocardial infarction [Not Recovered/Not Resolved]

NARRATIVE: CASE EVENT DATE: 20181120
